FAERS Safety Report 9555215 (Version 1)
Quarter: 2013Q3

REPORT INFORMATION
  Report Type: Spontaneous
  Country: US (occurrence: None)
  Receive Date: 20130815
  Receipt Date: 20130815
  Transmission Date: 20140515
  Serious: Yes (Other)
  Sender: FDA-Public Use
  Company Number: ADR-2012-01407

PATIENT
  Sex: Female

DRUGS (4)
  1. BACLOFEN INTRATHECAL (BACLOFEN INJECTION) [Suspect]
     Indication: POST LAMINECTOMY SYNDROME
  2. BACLOFEN INTRATHECAL (BACLOFEN INJECTION) [Suspect]
     Indication: BACK PAIN
  3. BUPIVACAINE [Concomitant]
  4. MORPHINE [Concomitant]

REACTIONS (4)
  - Hypoaesthesia [None]
  - Back pain [None]
  - Muscle spasms [None]
  - Incorrect route of drug administration [None]
